FAERS Safety Report 25105809 (Version 1)
Quarter: 2025Q1

REPORT INFORMATION
  Report Type: Spontaneous
  Country: US (occurrence: US)
  Receive Date: 20250321
  Receipt Date: 20250321
  Transmission Date: 20250408
  Serious: No
  Sender: BRAEBURN PHARMACEUTICALS
  Company Number: US-BRAEBURN-US-BRA-24-001299

PATIENT
  Sex: Male

DRUGS (2)
  1. BRIXADI [Suspect]
     Active Substance: BUPRENORPHINE
     Indication: Illness
     Dosage: 96 MILLIGRAM, MONTHLY
     Route: 058
  2. BRIXADI [Suspect]
     Active Substance: BUPRENORPHINE
     Route: 058
     Dates: start: 20241228

REACTIONS (2)
  - Withdrawal syndrome [Unknown]
  - Product use in unapproved indication [Unknown]
